FAERS Safety Report 8629406 (Version 2)
Quarter: 2012Q4

REPORT INFORMATION
  Report Type: 
  Country: FR (occurrence: FR)
  Receive Date: 20120622
  Receipt Date: 20121108
  Transmission Date: 20130627
  Serious: Yes (Death, Life-Threatening)
  Sender: FDA-Public Use
  Company Number: FR-BRISTOL-MYERS SQUIBB COMPANY-16695025

PATIENT
  Age: 77 Year
  Sex: Male

DRUGS (8)
  1. COAPROVEL FILM-COATED TABS 300/12.5 MG [Suspect]
     Indication: HYPERTENSION
     Dosage: 1df=1 tab
     Route: 048
  2. GLUCOPHAGE [Suspect]
     Indication: TYPE 2 DIABETES MELLITUS
     Route: 048
  3. TAHOR [Suspect]
     Indication: DYSLIPIDAEMIA
     Route: 048
  4. LEXOMIL [Suspect]
     Indication: ANXIETY
     Route: 048
  5. AMAREL [Suspect]
     Indication: TYPE 2 DIABETES MELLITUS
     Route: 048
  6. OMEPRAZOLE [Suspect]
     Indication: GASTROOESOPHAGEAL REFLUX DISEASE
     Route: 048
  7. XELEVIA [Suspect]
     Indication: TYPE 2 DIABETES MELLITUS
     Route: 048
  8. IXPRIM [Suspect]
     Indication: PAIN
     Route: 048
     Dates: start: 201111

REACTIONS (2)
  - Pancreatic carcinoma [Fatal]
  - Pancreatic carcinoma metastatic [None]
